FAERS Safety Report 10341641 (Version 4)
Quarter: 2015Q1

REPORT INFORMATION
  Report Type: Report from Study
  Country: CA (occurrence: CA)
  Receive Date: 20140725
  Receipt Date: 20150109
  Transmission Date: 20150720
  Serious: Yes (Other)
  Sender: FDA-Public Use
  Company Number: PHHY2013CA129570

PATIENT
  Age: 70 Year
  Sex: Female

DRUGS (1)
  1. SANDOSTATIN LAR DEPOT [Suspect]
     Active Substance: OCTREOTIDE ACETATE
     Indication: ANGIODYSPLASIA
     Dosage: 20 MG, EVERY 4 WEEKS
     Route: 030
     Dates: start: 20121015

REACTIONS (7)
  - Sleep disorder [Recovering/Resolving]
  - Blood pressure increased [Unknown]
  - Rib fracture [Unknown]
  - Fracture pain [Unknown]
  - Fatigue [Unknown]
  - Product use issue [Unknown]
  - Stress [Unknown]

NARRATIVE: CASE EVENT DATE: 20131111
